FAERS Safety Report 11401939 (Version 1)
Quarter: 2015Q3

REPORT INFORMATION
  Report Type: Spontaneous
  Country: US (occurrence: US)
  Receive Date: 20150821
  Receipt Date: 20150821
  Transmission Date: 20151125
  Serious: No
  Sender: FDA-Public Use
  Company Number: US-ROCHE-1352246

PATIENT
  Age: 65 Year
  Sex: Male
  Weight: 69.01 kg

DRUGS (10)
  1. DILAUDID [Concomitant]
     Active Substance: HYDROMORPHONE HYDROCHLORIDE
  2. FLAXSEED [Concomitant]
     Active Substance: FLAX SEED
  3. MILK THISTLE [Concomitant]
     Active Substance: MILK THISTLE
  4. HCTZ [Concomitant]
     Active Substance: HYDROCHLOROTHIAZIDE
  5. RIBASPHERE [Suspect]
     Active Substance: RIBAVIRIN
     Indication: CHRONIC HEPATITIS C
     Route: 048
     Dates: start: 20140222
  6. PEGASYS [Suspect]
     Active Substance: PEGINTERFERON ALFA-2A
     Indication: CHRONIC HEPATITIS C
     Route: 058
     Dates: start: 20140214
  7. SOVALDI [Suspect]
     Active Substance: SOFOSBUVIR
     Indication: CHRONIC HEPATITIS C
     Route: 048
     Dates: start: 20140214
  8. RIBASPHERE [Suspect]
     Active Substance: RIBAVIRIN
     Dosage: DIVIDED DOSES 600/600
     Route: 048
     Dates: start: 20140214
  9. MORPHINE [Concomitant]
     Active Substance: MORPHINE
  10. IBUPROFEN. [Concomitant]
     Active Substance: IBUPROFEN

REACTIONS (11)
  - Headache [Not Recovered/Not Resolved]
  - Chills [Not Recovered/Not Resolved]
  - Fatigue [Not Recovered/Not Resolved]
  - Insomnia [Unknown]
  - Pyrexia [Not Recovered/Not Resolved]
  - Feeling abnormal [Unknown]
  - Insomnia [Not Recovered/Not Resolved]
  - Urticaria [Unknown]
  - Abdominal pain upper [Unknown]
  - Full blood count decreased [Unknown]
  - Nausea [Unknown]

NARRATIVE: CASE EVENT DATE: 20140214
